FAERS Safety Report 7991156-2 (Version None)
Quarter: 2011Q4

REPORT INFORMATION
  Report Type: 
  Country: None (occurrence: None)
  Receive Date: 20111215
  Receipt Date: 20111129
  Transmission Date: 20120403
  Serious: Yes (Other)
  Sender: FDA-Public Use
  Company Number: 2011SP057378

PATIENT
  Sex: Male

DRUGS (1)
  1. VICTRELIS [Suspect]
     Indication: PRODUCT USED FOR UNKNOWN INDICATION
     Dosage: PO
     Route: 048

REACTIONS (5)
  - PSYCHIATRIC SYMPTOM [None]
  - AGGRESSION [None]
  - FATIGUE [None]
  - SUICIDAL IDEATION [None]
  - HOMICIDAL IDEATION [None]
